FAERS Safety Report 9507208 (Version 1)
Quarter: 2013Q1

REPORT INFORMATION
  Report Type: Spontaneous
  Country: US (occurrence: None)
  Receive Date: 20130305
  Receipt Date: 20130305
  Transmission Date: 20140127
  Serious: Yes (Other)
  Sender: FDA-Public Use
  Company Number: 163-21880-12050997

PATIENT
  Age: 66 Year
  Sex: Female
  Weight: 52.4 kg

DRUGS (13)
  1. REVLIMID (LENALIDOMIDE) (25 MILLIGRAM, CAPSULES) [Suspect]
     Indication: PLASMA CELL MYELOMA
     Dosage: 25 MG, D1-14, PO
     Route: 048
     Dates: start: 20120116, end: 20120409
  2. DEXAMETHASONE (DEXAMETHASONE) (UNKNOWN) [Concomitant]
  3. ACYCLOVIR (ACICLOVIR) (UNKNOWN) [Concomitant]
  4. TRAMADOL (TRAMADOL) (UNKNOWN) [Concomitant]
  5. GABAPENTIN (GABAPENTIN) (UNKNOWN) (GABAPENTIN) [Concomitant]
  6. DICYCLOMINE (DICYCLOVERINE) (TABLETS) [Concomitant]
  7. OMEPRAZOLE (OMEPRAZOLE) (UNKNOWN) [Concomitant]
  8. LEVOTHYROXINE (LEVOTHYROXINE) (UNKNOWN) [Concomitant]
  9. VELCADE [Concomitant]
  10. ATENOLOL (ATENOLOL) (UNKNOWN) [Concomitant]
  11. BABY ASA (ACETYLSALICYLIC ACID) (UNKNOWN) [Concomitant]
  12. CALCIUM + VITAMIN D SUPPLEMENT (CALCIUM + VIT D) (UNKNOWN) [Concomitant]
  13. MULTIVITAMINS (MULTIVITAMINS) (UNKNOWN) [Concomitant]

REACTIONS (1)
  - Herpes zoster [None]
